FAERS Safety Report 14012763 (Version 1)
Quarter: 2017Q3

REPORT INFORMATION
  Report Type: Spontaneous
  Country: JP (occurrence: JP)
  Receive Date: 20170926
  Receipt Date: 20170926
  Transmission Date: 20171128
  Serious: Yes (Hospitalization, Other)
  Sender: FDA-Public Use
  Company Number: JP-ENDO PHARMACEUTICALS INC-2017-005053

PATIENT
  Age: 87 Year
  Sex: Female
  Weight: 42 kg

DRUGS (3)
  1. URSODEOXYCHOLIC ACID [Concomitant]
     Active Substance: URSODIOL
     Indication: PRODUCT USED FOR UNKNOWN INDICATION
     Dosage: 300 MG, OD
     Route: 065
  2. SUCRALFATE. [Concomitant]
     Active Substance: SUCRALFATE
     Indication: PRODUCT USED FOR UNKNOWN INDICATION
     Dosage: 2700 MG, OD
     Route: 065
  3. CLONAZEPAM. [Suspect]
     Active Substance: CLONAZEPAM
     Indication: EPILEPSY
     Dosage: 0.5 MG, TID THROUGH NASOGASTRIC TUBE

REACTIONS (8)
  - Bradycardia [Recovered/Resolved]
  - Myocardial infarction [Recovered/Resolved]
  - Sinus node dysfunction [Unknown]
  - Cardiomegaly [Unknown]
  - Supraventricular extrasystoles [Unknown]
  - Sinoatrial block [Unknown]
  - Pulmonary hypertension [Unknown]
  - Atrial fibrillation [Unknown]
